FAERS Safety Report 7555424-0 (Version None)
Quarter: 2011Q2

REPORT INFORMATION
  Report Type: 
  Country: None (occurrence: None)
  Receive Date: 20110617
  Receipt Date: 20110527
  Transmission Date: 20111010
  Serious: No
  Sender: FDA-Public Use
  Company Number: US-B.I. PHARMACEUTICALS,INC./RIDGEFIELD-2011-BP-14183BP

PATIENT
  Age: 77 Year
  Sex: Female

DRUGS (8)
  1. LOVAZA [Concomitant]
     Indication: BLOOD CHOLESTEROL INCREASED
  2. CITALOPRAM HYDROBROMIDE [Concomitant]
     Indication: DEPRESSION
  3. ASPIRIN [Concomitant]
     Indication: PROPHYLAXIS
  4. LISINOPRIL [Concomitant]
     Indication: HYPERTENSION
  5. CALCIUM CARBONATE [Concomitant]
     Indication: SUPPLEMENTATION THERAPY
  6. SPIRIVA [Suspect]
     Indication: CHRONIC OBSTRUCTIVE PULMONARY DISEASE
     Dosage: 18 MCG
     Route: 055
     Dates: start: 20110401
  7. MULTIPLE VITAMIN [Concomitant]
     Indication: SUPPLEMENTATION THERAPY
  8. LOVASTATIN [Concomitant]
     Indication: BLOOD CHOLESTEROL INCREASED

REACTIONS (8)
  - BLOOD TRIGLYCERIDES INCREASED [None]
  - OCULAR HYPERAEMIA [None]
  - DYSURIA [None]
  - DRY MOUTH [None]
  - DYSPEPSIA [None]
  - VERTIGO [None]
  - DYSPHONIA [None]
  - EYE PAIN [None]
